FAERS Safety Report 16038291 (Version 1)
Quarter: 2019Q1

REPORT INFORMATION
  Report Type: Spontaneous
  Country: DE (occurrence: DE)
  Receive Date: 20190305
  Receipt Date: 20190305
  Transmission Date: 20190418
  Serious: Yes (Hospitalization)
  Sender: FDA-Public Use
  Company Number: DE-TEVA-2019-DE-1017958

PATIENT
  Age: 49 Year
  Sex: Male
  Weight: 170 kg

DRUGS (5)
  1. HEPARIN [Suspect]
     Active Substance: HEPARIN SODIUM
     Route: 065
  2. FORTUM [Suspect]
     Active Substance: CEFTAZIDIME
  3. LEPONEX / CLOZARIL (CLOZAPINE) [Suspect]
     Active Substance: CLOZAPINE
     Indication: SCHIZOPHRENIA
     Dosage: 300 MILLIGRAM DAILY; 100 MG, TID
     Route: 048
     Dates: start: 20010510, end: 20010522
  4. VANCOMYCIN [Suspect]
     Active Substance: VANCOMYCIN
     Route: 065
  5. FLUCONAZOLE. [Suspect]
     Active Substance: FLUCONAZOLE
     Route: 065

REACTIONS (2)
  - Sepsis [Unknown]
  - Pancytopenia [Recovered/Resolved]

NARRATIVE: CASE EVENT DATE: 20010510
